FAERS Safety Report 8829347 (Version 2)
Quarter: 2012Q4

REPORT INFORMATION
  Report Type: 
  Country: US (occurrence: US)
  Receive Date: 20121008
  Receipt Date: 20121126
  Transmission Date: 20130627
  Serious: Yes (Hospitalization)
  Sender: FDA-Public Use
  Company Number: US-MPIJNJ-2012-06800

PATIENT
  Age: 46 Year
  Sex: Male
  Weight: 75.6 kg

DRUGS (5)
  1. VELCADE [Suspect]
     Indication: MULTIPLE MYELOMA
     Dosage: UNK UNK, Cyclic
     Dates: start: 20120821, end: 20120918
  2. CYCLOSPORINE [Suspect]
     Indication: MULTIPLE MYELOMA
     Dosage: 125 mg, bid
     Route: 048
  3. FLUDARABINE [Suspect]
     Indication: MULTIPLE MYELOMA
  4. MELPHALAN [Suspect]
     Indication: MULTIPLE MYELOMA
  5. MYCOPHENOLATE MOFETIL [Suspect]
     Indication: MULTIPLE MYELOMA
     Dosage: 1000 mg, bid
     Route: 048

REACTIONS (2)
  - Cytomegalovirus infection [Recovering/Resolving]
  - Clostridium difficile infection [Recovering/Resolving]
